FAERS Safety Report 23748826 (Version 2)
Quarter: 2024Q3

REPORT INFORMATION
  Report Type: Spontaneous
  Country: US (occurrence: US)
  Receive Date: 20240416
  Receipt Date: 20240822
  Transmission Date: 20241016
  Serious: Yes (Other)
  Sender: PFIZER
  Company Number: US-PFIZER INC-202400085541

PATIENT
  Age: 77 Year
  Sex: Female

DRUGS (6)
  1. IBRANCE [Suspect]
     Active Substance: PALBOCICLIB
     Indication: Breast cancer metastatic
     Dosage: 125 MG, CYCLIC (21 DAYS ON AND 7 OFF)
     Dates: start: 20240228
  2. IBRANCE [Suspect]
     Active Substance: PALBOCICLIB
     Dosage: ONE 100MG DAILY, 21 DAYS ON, 7 DAYS OFF
     Route: 048
  3. FIBER THERAPY (CALCIUM POLYCARBOPHIL) [Concomitant]
     Active Substance: CALCIUM POLYCARBOPHIL
     Dosage: UNK
  4. GLUCOSAMINE + CHONDORITIN [Concomitant]
     Dosage: UNK
  5. POTASSIUM [Concomitant]
     Active Substance: POTASSIUM
     Dosage: UNK
  6. MENATETRENONE [Concomitant]
     Active Substance: MENATETRENONE
     Dosage: UNK

REACTIONS (7)
  - Mycobacterium avium complex infection [Not Recovered/Not Resolved]
  - Pneumonia [Not Recovered/Not Resolved]
  - White blood cell count decreased [Unknown]
  - Fatigue [Unknown]
  - Hepatic enzyme abnormal [Not Recovered/Not Resolved]
  - Aspartate aminotransferase increased [Unknown]
  - Alanine aminotransferase increased [Unknown]

NARRATIVE: CASE EVENT DATE: 20240325
